FAERS Safety Report 11550279 (Version 3)
Quarter: 2015Q4

REPORT INFORMATION
  Report Type: Report from Study
  Country: US (occurrence: US)
  Receive Date: 20150924
  Receipt Date: 20151224
  Transmission Date: 20160304
  Serious: Yes (Hospitalization, Other)
  Sender: FDA-Public Use
  Company Number: US-AMGEN-USASL2015098673

PATIENT
  Age: 34 Year
  Sex: Female

DRUGS (1)
  1. ENBREL [Suspect]
     Active Substance: ETANERCEPT
     Indication: RHEUMATOID ARTHRITIS
     Dosage: 50 MG, QWK
     Route: 065
     Dates: start: 20150831

REACTIONS (29)
  - Cough [Unknown]
  - Migraine [Unknown]
  - Headache [Unknown]
  - Pain [Not Recovered/Not Resolved]
  - Carditis [Not Recovered/Not Resolved]
  - Chronic kidney disease [Not Recovered/Not Resolved]
  - Drug effect decreased [Not Recovered/Not Resolved]
  - Increased bronchial secretion [Unknown]
  - Procedural pain [Not Recovered/Not Resolved]
  - Vaginal haemorrhage [Unknown]
  - Haemothorax [Not Recovered/Not Resolved]
  - Hydrothorax [Not Recovered/Not Resolved]
  - Rheumatoid arthritis [Not Recovered/Not Resolved]
  - Hypoaesthesia [Not Recovered/Not Resolved]
  - Aphonia [Unknown]
  - Oropharyngeal pain [Unknown]
  - Arthritis [Not Recovered/Not Resolved]
  - Hypoaesthesia [Not Recovered/Not Resolved]
  - Mobility decreased [Recovering/Resolving]
  - Joint swelling [Recovering/Resolving]
  - Nasal congestion [Unknown]
  - Joint effusion [Recovering/Resolving]
  - Arthralgia [Not Recovered/Not Resolved]
  - Anaemia [Recovering/Resolving]
  - Heart valve incompetence [Not Recovered/Not Resolved]
  - Cardiac disorder [Not Recovered/Not Resolved]
  - Dysphagia [Not Recovered/Not Resolved]
  - Malaise [Not Recovered/Not Resolved]
  - Influenza [Unknown]

NARRATIVE: CASE EVENT DATE: 2015
